FAERS Safety Report 20959636 (Version 2)
Quarter: 2022Q3

REPORT INFORMATION
  Report Type: Report from Study
  Country: US (occurrence: US)
  Receive Date: 20220614
  Receipt Date: 20220825
  Transmission Date: 20221026
  Serious: Yes (Hospitalization, Other)
  Sender: FDA-Public Use
  Company Number: US-INCYTE CORPORATION-2021IN002860

PATIENT

DRUGS (38)
  1. JAKAFI [Suspect]
     Active Substance: RUXOLITINIB
     Indication: Essential thrombocythaemia
     Dosage: 5 MILLIGRAM, QOD
     Route: 048
     Dates: start: 20190618
  2. JAKAFI [Suspect]
     Active Substance: RUXOLITINIB
     Indication: Thrombocytopenia
     Dosage: 10 MILLIGRAM, BID
     Route: 065
     Dates: start: 20190618, end: 20190708
  3. JAKAFI [Suspect]
     Active Substance: RUXOLITINIB
     Dosage: 20 MILLIGRAM, BID
     Route: 065
     Dates: start: 20190709, end: 20190819
  4. JAKAFI [Suspect]
     Active Substance: RUXOLITINIB
     Dosage: 10 MILLIGRAM, BID
     Route: 065
     Dates: start: 20190820, end: 20190823
  5. JAKAFI [Suspect]
     Active Substance: RUXOLITINIB
     Dosage: 5 MILLIGRAM, BID
     Route: 065
     Dates: start: 20190824, end: 20200219
  6. JAKAFI [Suspect]
     Active Substance: RUXOLITINIB
     Dosage: 5 MILLIGRAM, QD
     Route: 065
     Dates: start: 20200220, end: 20200513
  7. JAKAFI [Suspect]
     Active Substance: RUXOLITINIB
     Dosage: 5 MILLIGRAM, QOD
     Route: 065
     Dates: start: 20200514, end: 20210113
  8. PREDNISONE [Concomitant]
     Active Substance: PREDNISONE
     Indication: Cutaneous sarcoidosis
     Dosage: 1 MILLIGRAM, EVERY 48 HOURS
     Route: 048
     Dates: start: 2001
  9. PREDNISONE [Concomitant]
     Active Substance: PREDNISONE
     Dosage: 1 MILLIGRAM, QOD
     Route: 065
     Dates: start: 2005
  10. LORAZEPAM [Concomitant]
     Active Substance: LORAZEPAM
     Indication: Anxiety
     Dosage: 1 MILLIGRAM, PRN
     Route: 048
     Dates: start: 2009
  11. OMEPRAZOLE [Concomitant]
     Active Substance: OMEPRAZOLE
     Indication: Gastrooesophageal reflux disease
     Dosage: 20 MILLIGRAM, QD
     Route: 048
     Dates: start: 2009
  12. CHOLECALCIFEROL [Concomitant]
     Active Substance: CHOLECALCIFEROL
     Indication: Vitamin D deficiency
     Dosage: 1000 MILLIGRAM, QD
     Route: 048
     Dates: start: 2012
  13. ASCORBIC ACID [Concomitant]
     Active Substance: ASCORBIC ACID
     Indication: Anaemia
     Dosage: 1 TABLET, QD
     Route: 048
     Dates: start: 2009
  14. ASCORBIC ACID [Concomitant]
     Active Substance: ASCORBIC ACID
     Dosage: 1 MILLIGRAM, QD
     Route: 065
     Dates: start: 2009
  15. CALCIUM CARBONATE [Concomitant]
     Active Substance: CALCIUM CARBONATE
     Indication: Gastrooesophageal reflux disease
     Dosage: 3 TABLETS, PRN
     Route: 048
     Dates: start: 2009, end: 202005
  16. GLUCOSAMINE [Concomitant]
     Active Substance: GLUCOSAMINE
     Indication: General physical condition
     Dosage: 1 TABLET, QD
     Route: 048
     Dates: start: 2009
  17. VITAMINS NOS [Concomitant]
     Active Substance: VITAMINS
     Indication: General physical condition
     Dosage: 1 TABLET, QD
     Route: 048
     Dates: start: 2009
  18. FUROSEMIDE [Concomitant]
     Active Substance: FUROSEMIDE
     Indication: Cardiac failure congestive
     Dosage: 40 MILLIGRAM, BID
     Route: 048
     Dates: start: 20190521, end: 20190910
  19. FUROSEMIDE [Concomitant]
     Active Substance: FUROSEMIDE
     Indication: Dyspnoea
     Dosage: 40 MILLIGRAM, BID
     Route: 048
     Dates: start: 20190911, end: 20200621
  20. HYDROXYUREA [Concomitant]
     Active Substance: HYDROXYUREA
     Indication: Essential thrombocythaemia
     Dosage: 500 MILLIGRAM, BID
     Route: 065
     Dates: start: 20090901, end: 20190109
  21. HYDROXYUREA [Concomitant]
     Active Substance: HYDROXYUREA
     Indication: Thrombocytopenia
     Dosage: 500 MILLIGRAM, QD
     Route: 065
     Dates: start: 20190110, end: 20190219
  22. HYDROXYUREA [Concomitant]
     Active Substance: HYDROXYUREA
     Dosage: 1000 MILLIGRAM, QOD
     Route: 065
     Dates: start: 20190220, end: 20190403
  23. HYDROXYUREA [Concomitant]
     Active Substance: HYDROXYUREA
     Dosage: 500 MILLIGRAM, QOD
     Route: 065
     Dates: start: 20190221, end: 20190403
  24. HYDROXYUREA [Concomitant]
     Active Substance: HYDROXYUREA
     Dosage: 500 MILLIGRAM, QD
     Route: 065
     Dates: start: 20190404, end: 20190508
  25. HYDROXYUREA [Concomitant]
     Active Substance: HYDROXYUREA
     Dosage: 500 MILLIGRAM
     Route: 065
     Dates: start: 20210113
  26. HYDROXYUREA [Concomitant]
     Active Substance: HYDROXYUREA
     Dosage: 500 MILLIGRAM
     Route: 065
     Dates: start: 20210611, end: 20210803
  27. HYDROXYUREA [Concomitant]
     Active Substance: HYDROXYUREA
     Dosage: 500 MILLIGRAM, QD
     Route: 065
     Dates: start: 20210804, end: 20220303
  28. HYDROXYUREA [Concomitant]
     Active Substance: HYDROXYUREA
     Dosage: 1000 MILLIGRAM, QD
     Route: 065
     Dates: start: 20220304
  29. METOPROLOL [Concomitant]
     Active Substance: METOPROLOL
     Indication: Supraventricular tachycardia
     Dosage: 12.5 MILLIGRAM, TID
     Route: 065
     Dates: start: 2006, end: 20210309
  30. METOPROLOL [Concomitant]
     Active Substance: METOPROLOL
     Dosage: 25 MILLIGRAM, BID
     Route: 065
     Dates: start: 20210310
  31. HYDROCHLOROTHIAZIDE [Concomitant]
     Active Substance: HYDROCHLOROTHIAZIDE
     Indication: Hypertension
     Dosage: 12.5 MILLIGRAM, QD
     Route: 065
     Dates: start: 20181113, end: 20190521
  32. ATORVASTATIN [Concomitant]
     Active Substance: ATORVASTATIN
     Indication: Hyperlipidaemia
     Dosage: 40 MILLIGRAM, QD
     Route: 065
     Dates: start: 20200621
  33. AMLODIPINE [Concomitant]
     Active Substance: AMLODIPINE BESYLATE
     Indication: Hypertension
     Dosage: 2.5 MILLIGRAM, QD
     Route: 065
     Dates: start: 20200626
  34. SIMETHICONE (DIMETHICONE) [Concomitant]
     Active Substance: DIMETHICONE
     Indication: Gastrooesophageal reflux disease
     Dosage: 125 MILLIGRAM, PRN
     Route: 065
     Dates: start: 20210309
  35. ACETAMINOPHEN [Concomitant]
     Active Substance: ACETAMINOPHEN
     Indication: Arthritis
     Dosage: 650 MILLIGRAM, PRN
     Route: 065
     Dates: start: 20200620
  36. HEPARIN [Concomitant]
     Active Substance: HEPARIN SODIUM
     Indication: Deep vein thrombosis
     Dosage: 2000 UNITS, BID
     Route: 065
     Dates: start: 20200617, end: 20200621
  37. RANOLAZINE [Concomitant]
     Active Substance: RANOLAZINE
     Indication: Acute coronary syndrome
     Dosage: 500 MILLIGRAM, BID
     Route: 065
     Dates: start: 202010
  38. ASPIRIN [Concomitant]
     Active Substance: ASPIRIN
     Indication: Acute coronary syndrome
     Dosage: 325 MILLIGRAM, QD
     Route: 065
     Dates: start: 20200622

REACTIONS (6)
  - Acute coronary syndrome [Recovered/Resolved]
  - Cerebral arteriosclerosis [Not Recovered/Not Resolved]
  - Cerebrovascular accident [Recovered/Resolved]
  - Coronary artery disease [Not Recovered/Not Resolved]
  - Constipation [Not Recovered/Not Resolved]
  - Hyperuricaemia [Not Recovered/Not Resolved]

NARRATIVE: CASE EVENT DATE: 20200617
